FAERS Safety Report 25048569 (Version 1)
Quarter: 2025Q1

REPORT INFORMATION
  Report Type: Spontaneous
  Country: US (occurrence: US)
  Receive Date: 20250307
  Receipt Date: 20250307
  Transmission Date: 20250409
  Serious: Yes (Other)
  Sender: SUNOVION
  Company Number: US-SMPA-2025SPA002400

PATIENT

DRUGS (41)
  1. ORGOVYX [Suspect]
     Active Substance: RELUGOLIX
     Indication: Prostate cancer
     Route: 048
  2. ORGOVYX [Suspect]
     Active Substance: RELUGOLIX
     Route: 048
     Dates: start: 20220801
  3. PREDNISOLONE [Concomitant]
     Active Substance: PREDNISOLONE
     Route: 065
  4. OFLOXACIN [Concomitant]
     Active Substance: OFLOXACIN
     Route: 065
  5. PROLENSA [Concomitant]
     Active Substance: BROMFENAC SODIUM
     Route: 065
  6. Bovine bone [Concomitant]
     Route: 065
  7. VITAMIN A [Concomitant]
     Active Substance: VITAMIN A
     Route: 065
  8. Florassist prebiotic [Concomitant]
     Route: 065
  9. LITHIUM [Concomitant]
     Active Substance: LITHIUM
     Route: 065
  10. MacuGuard Ocular support [Concomitant]
     Route: 065
  11. MENAQUINONE 5 [Concomitant]
     Active Substance: MENAQUINONE 5
     Route: 065
  12. Trans-resveratrol [Concomitant]
     Route: 065
  13. Potassium Citrate Citric Acid [Concomitant]
     Route: 065
  14. ZINC [Concomitant]
     Active Substance: ZINC
     Route: 065
  15. Prolamine [Concomitant]
     Route: 065
  16. Viteyes [Concomitant]
     Route: 065
  17. THYMUS PREPARATION [Concomitant]
     Active Substance: THYMUS PREPARATION
     Route: 065
  18. VITAMIN D3 [Concomitant]
     Active Substance: CHOLECALCIFEROL
     Route: 065
  19. EVENING PRIMROSE OIL\HERBALS [Concomitant]
     Active Substance: EVENING PRIMROSE OIL\HERBALS
     Route: 065
  20. AMINO ACIDS, SOURCE UNSPECIFIED [Concomitant]
     Active Substance: AMINO ACIDS, SOURCE UNSPECIFIED
     Route: 065
  21. SELENIUM [Concomitant]
     Active Substance: SELENIUM
     Route: 065
  22. UBIQUINOL [Concomitant]
     Active Substance: UBIQUINOL
     Route: 065
  23. Triple action [Concomitant]
     Route: 065
  24. Cruciferous Complete [Concomitant]
     Route: 065
  25. Ultra prostate formula [Concomitant]
     Route: 065
  26. ARGININE [Concomitant]
     Active Substance: ARGININE
     Route: 065
  27. Chlorophyll [Concomitant]
     Route: 065
  28. Complex [Concomitant]
     Route: 065
  29. HYPOTHALAMUS [Concomitant]
     Active Substance: ORYCTOLAGUS CUNICULUS HYPOTHALAMUS
     Route: 065
  30. LYSINE [Concomitant]
     Active Substance: LYSINE
     Route: 065
  31. MAGNESIUM CITRATE [Concomitant]
     Active Substance: MAGNESIUM CITRATE
     Route: 065
  32. Multizyme [Concomitant]
     Route: 065
  33. VITAMIN C [Concomitant]
     Active Substance: ASCORBIC ACID
     Route: 065
  34. TAURINE [Concomitant]
     Active Substance: TAURINE
     Route: 065
  35. XTANDI [Concomitant]
     Active Substance: ENZALUTAMIDE
     Route: 065
  36. HERBALS\TURMERIC [Concomitant]
     Active Substance: HERBALS\TURMERIC
     Route: 065
  37. ACETAMINOPHEN [Concomitant]
     Active Substance: ACETAMINOPHEN
     Route: 065
  38. BACLOFEN [Concomitant]
     Active Substance: BACLOFEN
     Route: 065
  39. METHOCARBAMOL [Concomitant]
     Active Substance: METHOCARBAMOL
     Route: 065
  40. TRAMADOL [Concomitant]
     Active Substance: TRAMADOL
     Route: 065
  41. OXYCODONE [Concomitant]
     Active Substance: OXYCODONE
     Route: 065

REACTIONS (1)
  - Hip surgery [Unknown]

NARRATIVE: CASE EVENT DATE: 20250130
